FAERS Safety Report 12458820 (Version 2)
Quarter: 2016Q3

REPORT INFORMATION
  Report Type: Report from Study
  Country: US (occurrence: US)
  Receive Date: 20160613
  Receipt Date: 20160803
  Transmission Date: 20161109
  Serious: Yes (Other)
  Sender: FDA-Public Use
  Company Number: US-AMGEN-USASL2016073591

PATIENT
  Age: 67 Year
  Sex: Female

DRUGS (2)
  1. ENBREL [Suspect]
     Active Substance: ETANERCEPT
     Indication: RHEUMATOID ARTHRITIS
     Dosage: 50 MG, QWK
     Route: 065
     Dates: start: 2012
  2. FORTEO [Concomitant]
     Active Substance: TERIPARATIDE
     Route: 065

REACTIONS (5)
  - Neoplasm malignant [Unknown]
  - Dysentery [Unknown]
  - Spinal fracture [Unknown]
  - Hand deformity [Unknown]
  - Cataract [Unknown]
